FAERS Safety Report 4780123-8 (Version None)
Quarter: 2005Q3

REPORT INFORMATION
  Report Type: 
  Country: None (occurrence: None)
  Receive Date: 20050927
  Receipt Date: 20050921
  Transmission Date: 20060218
  Serious: Yes (Death)
  Sender: FDA-Public Use
  Company Number: US-MERCK-0509USA03249

PATIENT
  Age: 64 Year
  Sex: Male
  Weight: 86 kg

DRUGS (8)
  1. VIOXX [Suspect]
     Indication: ARTHRITIS
     Route: 048
     Dates: start: 20020513, end: 20030728
  2. ELAVIL [Concomitant]
     Indication: STRESS
     Route: 048
     Dates: start: 20030101, end: 20030928
  3. ELAVIL [Concomitant]
     Indication: DEPRESSION
     Route: 048
     Dates: start: 20030101, end: 20030928
  4. TRIAZOLAM [Concomitant]
     Indication: STRESS
     Route: 048
     Dates: start: 20030101, end: 20030928
  5. TRIAZOLAM [Concomitant]
     Indication: DEPRESSION
     Route: 048
     Dates: start: 20030101, end: 20030928
  6. VALIUM [Concomitant]
     Indication: STRESS
     Route: 048
     Dates: start: 20030101, end: 20030928
  7. VALIUM [Concomitant]
     Indication: DEPRESSION
     Route: 048
     Dates: start: 20030101, end: 20030928
  8. CELEBREX [Concomitant]
     Route: 048

REACTIONS (1)
  - MYOCARDIAL INFARCTION [None]
